FAERS Safety Report 6410820-X (Version None)
Quarter: 2009Q4

REPORT INFORMATION
  Report Type: 
  Country: None (occurrence: None)
  Receive Date: 20091020
  Receipt Date: 20091020
  Transmission Date: 20100525
  Serious: Yes (Hospitalization)
  Sender: FDA-Public Use
  Company Number: None

PATIENT
  Sex: Female
  Weight: 58.9676 kg

DRUGS (2)
  1. MIRENA [Suspect]
     Indication: HORMONE LEVEL ABNORMAL
     Dosage: CONSTANT VAG
     Route: 067
  2. MIRENA [Suspect]
     Indication: POSTPARTUM STATE
     Dosage: CONSTANT VAG
     Route: 067

REACTIONS (9)
  - COMPLICATION OF DEVICE INSERTION [None]
  - COMPLICATION OF DEVICE REMOVAL [None]
  - HEADACHE [None]
  - LOSS OF CONSCIOUSNESS [None]
  - LOSS OF LIBIDO [None]
  - MEDICAL DEVICE COMPLICATION [None]
  - MOOD SWINGS [None]
  - PAIN [None]
  - WEIGHT INCREASED [None]
